FAERS Safety Report 5192509-0 (Version None)
Quarter: 2006Q4

REPORT INFORMATION
  Report Type: 
  Country: None (occurrence: None)
  Receive Date: 20061220
  Receipt Date: 20061108
  Transmission Date: 20070319
  Serious: Yes (Hospitalization)
  Sender: FDA-Public Use
  Company Number: A-JP2006-13828

PATIENT
  Age: 60 Year
  Sex: Female

DRUGS (5)
  1. TRACLEER [Suspect]
     Indication: PULMONARY HYPERTENSION
     Dosage: 125 MG, QD; 93.75 MG, QD
     Dates: start: 20060101, end: 20061001
  2. TRACLEER [Suspect]
     Indication: PULMONARY HYPERTENSION
     Dosage: 125 MG, QD; 93.75 MG, QD
     Dates: start: 20061001, end: 20061001
  3. TRACLEER [Suspect]
     Indication: PULMONARY HYPERTENSION
     Dosage: 125 MG, QD; 93.75 MG, QD
     Dates: start: 20061001
  4. WARFARIN SODIUM [Concomitant]
  5. BERAPROST SODIUM [Concomitant]

REACTIONS (2)
  - HAEMOPTYSIS [None]
  - PULMONARY HAEMORRHAGE [None]
